FAERS Safety Report 16921121 (Version 2)
Quarter: 2019Q4

REPORT INFORMATION
  Report Type: Spontaneous
  Country: RU (occurrence: RU)
  Receive Date: 20191015
  Receipt Date: 20191029
  Transmission Date: 20200122
  Serious: Yes (Hospitalization)
  Sender: FDA-Public Use
  Company Number: NVSC2019RU001943

PATIENT
  Age: 59 Year
  Sex: Female

DRUGS (2)
  1. METHOTREXATE. [Suspect]
     Active Substance: METHOTREXATE
     Indication: RHEUMATOID ARTHRITIS
     Dosage: 7.5 MG, QW
     Route: 065
     Dates: start: 200404, end: 200607
  2. METHOTREXATE. [Suspect]
     Active Substance: METHOTREXATE
     Dosage: 20 MG, QW
     Route: 065
     Dates: start: 200607

REACTIONS (6)
  - Rheumatoid arthritis [Not Recovered/Not Resolved]
  - Joint stiffness [Unknown]
  - Arthralgia [Unknown]
  - Rheumatoid nodule [Unknown]
  - Joint swelling [Unknown]
  - Weight decreased [Unknown]

NARRATIVE: CASE EVENT DATE: 200511
